FAERS Safety Report 6864568-8 (Version None)
Quarter: 2010Q3

REPORT INFORMATION
  Report Type: 
  Country: None (occurrence: None)
  Receive Date: 20100721
  Receipt Date: 20080328
  Transmission Date: 20110219
  Serious: No
  Sender: FDA-Public Use
  Company Number: US-PFIZER INC-2008028653

PATIENT
  Sex: Male
  Weight: 86.2 kg

DRUGS (3)
  1. CHANTIX [Suspect]
     Indication: SMOKING CESSATION THERAPY
     Dates: start: 20080201
  2. SERAX [Concomitant]
  3. ACIPHEX [Concomitant]

REACTIONS (5)
  - ABNORMAL DREAMS [None]
  - CIRCADIAN RHYTHM SLEEP DISORDER [None]
  - DEPRESSION [None]
  - MIDDLE INSOMNIA [None]
  - MOOD SWINGS [None]
